FAERS Safety Report 4681794-7 (Version None)
Quarter: 2005Q2

REPORT INFORMATION
  Report Type: 
  Country: None (occurrence: None)
  Receive Date: 20050601
  Receipt Date: 20050513
  Transmission Date: 20051028
  Serious: Yes (Death, Other)
  Sender: FDA-Public Use
  Company Number: US_0505117461

PATIENT
  Age: 27 Year
  Sex: Male
  Weight: 68 kg

DRUGS (1)
  1. ZYPREXA [Suspect]
     Indication: SCHIZOPHRENIA, PARANOID TYPE
     Dosage: 30 MG DAY

REACTIONS (20)
  - BLOOD CHOLESTEROL INCREASED [None]
  - BLOOD PRESSURE INCREASED [None]
  - BLOOD TRIGLYCERIDES INCREASED [None]
  - CIRCULATORY COLLAPSE [None]
  - DELUSION [None]
  - DIABETES MELLITUS NON-INSULIN-DEPENDENT [None]
  - DIFFICULTY IN WALKING [None]
  - EXTRAPYRAMIDAL DISORDER [None]
  - IMPAIRED SELF-CARE [None]
  - LOW DENSITY LIPOPROTEIN INCREASED [None]
  - METABOLIC SYNDROME [None]
  - MOBILITY DECREASED [None]
  - PSYCHOTIC DISORDER [None]
  - SALIVARY HYPERSECRETION [None]
  - SCHIZOPHRENIA, PARANOID TYPE [None]
  - SEDATION [None]
  - SLEEP APNOEA SYNDROME [None]
  - THERAPEUTIC RESPONSE DECREASED [None]
  - TREATMENT NONCOMPLIANCE [None]
  - WEIGHT INCREASED [None]
